FAERS Safety Report 8852593 (Version 3)
Quarter: 2013Q3

REPORT INFORMATION
  Report Type: Report from Study
  Country: BR (occurrence: BR)
  Receive Date: 20121022
  Receipt Date: 20130923
  Transmission Date: 20140515
  Serious: Yes (Other)
  Sender: FDA-Public Use
  Company Number: PHHY2012BR094319

PATIENT
  Sex: Female

DRUGS (3)
  1. ACLASTA [Suspect]
     Indication: LOWER LIMB FRACTURE
     Dosage: 5 MG/100 ML, SINGLE APPLICATION
     Route: 042
     Dates: start: 20121008
  2. ACLASTA [Suspect]
     Indication: BONE DISORDER
  3. CALCIUM [Suspect]
     Indication: BONE DISORDER
     Dosage: UNK

REACTIONS (3)
  - Fracture pain [Recovered/Resolved]
  - Pain in extremity [Recovered/Resolved]
  - Hypoaesthesia [Recovered/Resolved]
